FAERS Safety Report 6929267-2 (Version None)
Quarter: 2010Q3

REPORT INFORMATION
  Report Type: 
  Country: None (occurrence: None)
  Receive Date: 20100811
  Receipt Date: 20100726
  Transmission Date: 20110219
  Serious: Yes (Hospitalization)
  Sender: FDA-Public Use
  Company Number: 1000015433

PATIENT
  Age: 66 Year
  Sex: Male

DRUGS (4)
  1. NEBIVOLOL HCL [Suspect]
     Indication: HYPERTENSION
     Dosage: 5 MG (5 MG, 1 IN 1 D), ORAL
     Dates: end: 20091010
  2. FENOFIBRATE [Suspect]
     Indication: DYSLIPIDAEMIA
     Dosage: 160 MG (160 MG, 1 IN 1 D), ORAL
     Route: 048
     Dates: end: 20091010
  3. BETASERC [Suspect]
     Indication: VERTIGO
     Dosage: 24 MG (24 MG, 1 IN 1 D), ORAL, 12 MG (12 MG, 1 IN 1 D)
     Route: 048
  4. CO-TAREG [Suspect]
     Indication: HYPERTENSION
     Dosage: ORAL
     Route: 048
     Dates: end: 20091010

REACTIONS (9)
  - BRADYCARDIA [None]
  - DEHYDRATION [None]
  - GASTROENTERITIS [None]
  - LOSS OF CONSCIOUSNESS [None]
  - MALAISE [None]
  - ORTHOSTATIC HYPOTENSION [None]
  - PROTEIN TOTAL INCREASED [None]
  - RENAL FAILURE [None]
  - WHITE BLOOD CELL COUNT INCREASED [None]
